FAERS Safety Report 4422521-8 (Version None)
Quarter: 2004Q3

REPORT INFORMATION
  Report Type: 
  Country: None (occurrence: None)
  Receive Date: 20040713
  Receipt Date: 20040115
  Transmission Date: 20050211
  Serious: No
  Sender: FDA-Public Use
  Company Number: PHEH2004US00872

PATIENT
  Age: 5 Month
  Sex: Female

DRUGS (2)
  1. ELIDEL [Suspect]
     Indication: ECZEMA
     Dosage: BID, TOPICAL
     Route: 061
     Dates: start: 20040114, end: 20040114
  2. XOPENEX [Concomitant]

REACTIONS (3)
  - APPLICATION SITE PRURITUS [None]
  - CRYING [None]
  - IRRITABILITY [None]
